FAERS Safety Report 7244827-X (Version None)
Quarter: 2011Q1

REPORT INFORMATION
  Report Type: 
  Country: None (occurrence: None)
  Receive Date: 20110126
  Receipt Date: 20110118
  Transmission Date: 20110831
  Serious: Yes (Other)
  Sender: FDA-Public Use
  Company Number: US-JNJFOC-20110105373

PATIENT
  Sex: Female
  Weight: 99.79 kg

DRUGS (6)
  1. COMTAN [Concomitant]
     Indication: PARKINSON'S DISEASE
     Route: 048
  2. SYNTHROID [Concomitant]
     Indication: HYPOTHYROIDISM
     Route: 048
  3. LISINOPRIL [Concomitant]
     Indication: HYPERTENSION
     Route: 048
  4. SINEMET [Concomitant]
     Indication: PARKINSON'S DISEASE
     Route: 048
  5. SIMPONI [Suspect]
     Indication: PSORIATIC ARTHROPATHY
     Route: 058
  6. DETROL LA [Concomitant]
     Indication: URINARY INCONTINENCE
     Route: 048

REACTIONS (1)
  - LUNG NEOPLASM MALIGNANT [None]
